FAERS Safety Report 11737873 (Version 1)
Quarter: 2015Q4

REPORT INFORMATION
  Report Type: Spontaneous
  Country: US (occurrence: US)
  Receive Date: 20151110
  Receipt Date: 20151110
  Transmission Date: 20160304
  Serious: No
  Sender: FDA-Public Use
  Company Number: US-ELI_LILLY_AND_COMPANY-US201206003724

PATIENT
  Age: 75 Year
  Sex: Female

DRUGS (17)
  1. DIAZEPAM. [Concomitant]
     Active Substance: DIAZEPAM
     Dosage: 5 MG, UNK
  2. VITAMIN D3 [Concomitant]
     Active Substance: CHOLECALCIFEROL
     Dosage: 5000 IU, QD
  3. REGLAN [Concomitant]
     Active Substance: METOCLOPRAMIDE HYDROCHLORIDE
     Dosage: UNK, OTHER
  4. AMLODIPINE [Concomitant]
     Active Substance: AMLODIPINE BESYLATE
     Dosage: 5 MG, QD
  5. OMEPRAZOL [Concomitant]
     Active Substance: OMEPRAZOLE
     Dosage: 20 MG, QD
  6. VITAMIN D3 [Concomitant]
     Active Substance: CHOLECALCIFEROL
     Dosage: 5000 IU, QD
  7. TRAMADOL. [Concomitant]
     Active Substance: TRAMADOL
     Dosage: 25 MG, UNK
  8. CALCIUM MAGNESIUM [Concomitant]
     Active Substance: CALCIUM\MAGNESIUM
     Dosage: 2 DF, QD
  9. ALPRAZOLAM. [Concomitant]
     Active Substance: ALPRAZOLAM
     Dosage: 0.25 MG, TID
  10. HORMONES [Concomitant]
     Active Substance: UNSPECIFIED INGREDIENT
     Dosage: UNK, QD
  11. FLUTICASONE PROPIONATE. [Concomitant]
     Active Substance: FLUTICASONE PROPIONATE
     Dosage: 2 DF, QD
     Route: 045
  12. OCEAN SALINE NASAL SPRAY [Concomitant]
     Active Substance: SODIUM CHLORIDE
     Dosage: UNK, QD
     Route: 045
  13. ENZYMES [Concomitant]
     Dosage: 500 MG, OTHER
  14. FORTEO [Suspect]
     Active Substance: TERIPARATIDE
     Indication: OSTEOPOROSIS
     Dosage: 20 UG, QD
     Dates: start: 20120523
  15. PAPAYA ENZYMES [Concomitant]
     Dosage: 1 DF, OTHER
  16. MINERAL SUPPLEMENTS [Concomitant]
     Active Substance: MINERALS
  17. FORTEO [Suspect]
     Active Substance: TERIPARATIDE
     Dosage: 20 UG, QD

REACTIONS (17)
  - Contusion [Unknown]
  - Back pain [Unknown]
  - Sinusitis [Unknown]
  - Hypersomnia [Not Recovered/Not Resolved]
  - Injection site pain [Unknown]
  - Bone pain [Not Recovered/Not Resolved]
  - Pain [Unknown]
  - Arthralgia [Not Recovered/Not Resolved]
  - Road traffic accident [Unknown]
  - Head discomfort [Not Recovered/Not Resolved]
  - Injection site erythema [Recovered/Resolved]
  - Asthma [Not Recovered/Not Resolved]
  - Concussion [Unknown]
  - Dysgeusia [Unknown]
  - Pain in extremity [Not Recovered/Not Resolved]
  - Depression [Not Recovered/Not Resolved]
  - Parosmia [Not Recovered/Not Resolved]

NARRATIVE: CASE EVENT DATE: 2012
